FAERS Safety Report 7616733-X (Version None)
Quarter: 2011Q3

REPORT INFORMATION
  Report Type: 
  Country: None (occurrence: None)
  Receive Date: 20110718
  Receipt Date: 20110712
  Transmission Date: 20111222
  Serious: Yes (Hospitalization)
  Sender: FDA-Public Use
  Company Number: US-BIOGENIDEC-2011BI023136

PATIENT
  Age: 42 Year
  Sex: Female

DRUGS (7)
  1. OXYCONTIN [Concomitant]
  2. PERCOCET [Concomitant]
  3. BACLOFEN [Concomitant]
  4. TOPAMAX [Concomitant]
  5. TYSABRI [Suspect]
     Indication: MULTIPLE SCLEROSIS
     Route: 042
     Dates: start: 20080908
  6. OXYBUTYNIN [Concomitant]
  7. NEURONTIN [Concomitant]

REACTIONS (2)
  - BACK PAIN [None]
  - MULTIPLE SCLEROSIS RELAPSE [None]
